FAERS Safety Report 6870131-5 (Version None)
Quarter: 2010Q3

REPORT INFORMATION
  Report Type: 
  Country: None (occurrence: None)
  Receive Date: 20100722
  Receipt Date: 20100714
  Transmission Date: 20110219
  Serious: Yes (Hospitalization)
  Sender: FDA-Public Use
  Company Number: IT-PFIZER INC-2010065281

PATIENT
  Age: 71 Year
  Sex: Male

DRUGS (7)
  1. NORVASC [Suspect]
     Indication: HYPERTENSION
     Dosage: 10 MG, DAILY
     Route: 048
     Dates: start: 20070310, end: 20100310
  2. TICLID [Concomitant]
  3. CONCOR [Concomitant]
  4. COMBISARTAN [Concomitant]
  5. ZOLPIDEM [Concomitant]
  6. CATAPRESAN [Concomitant]
  7. PRAZENE [Concomitant]

REACTIONS (1)
  - PHOTOSENSITIVITY REACTION [None]
